FAERS Safety Report 5420883-6 (Version None)
Quarter: 2007Q3

REPORT INFORMATION
  Report Type: 
  Country: None (occurrence: None)
  Receive Date: 20070817
  Receipt Date: 20070817
  Transmission Date: 20080115
  Serious: Yes (Other)
  Sender: FDA-Public Use
  Company Number: None

PATIENT
  Sex: Female
  Weight: 55.9 kg

DRUGS (1)
  1. DOCETAXEL [Suspect]
     Indication: NEOPLASM MALIGNANT
     Dosage: 120MG IV
     Route: 042
     Dates: start: 20070803, end: 20070803

REACTIONS (4)
  - BACK PAIN [None]
  - DYSPNOEA [None]
  - PANIC REACTION [None]
  - WHEEZING [None]
